FAERS Safety Report 10425237 (Version 2)
Quarter: 2014Q3

REPORT INFORMATION
  Report Type: Other
  Country: GB (occurrence: GB)
  Receive Date: 20140902
  Receipt Date: 20140929
  Transmission Date: 20150326
  Serious: Yes (Disabling, Other)
  Sender: FDA-Public Use
  Company Number: GB-TAKEDA-2014TJP011732

PATIENT
  Age: 59 Year
  Sex: Female
  Weight: 66.67 kg

DRUGS (2)
  1. LANSOPRAZOLE. [Suspect]
     Active Substance: LANSOPRAZOLE
     Indication: PROPHYLAXIS
     Dosage: 1 TABLET, QD
     Route: 048
     Dates: start: 20130917, end: 20130921
  2. NAPROXEN. [Suspect]
     Active Substance: NAPROXEN
     Indication: PAIN IN EXTREMITY
     Dosage: 1 TABLET, BID
     Route: 048
     Dates: start: 20130917, end: 20130919

REACTIONS (4)
  - Weight decreased [Unknown]
  - Decreased appetite [Unknown]
  - Burnout syndrome [Unknown]
  - Tinnitus [Recovering/Resolving]

NARRATIVE: CASE EVENT DATE: 20130918
